FAERS Safety Report 9501977 (Version 2)
Quarter: 2013Q3

REPORT INFORMATION
  Report Type: Spontaneous
  Country: IT (occurrence: IT)
  Receive Date: 20130905
  Receipt Date: 20130922
  Transmission Date: 20140515
  Serious: Yes (Hospitalization)
  Sender: FDA-Public Use
  Company Number: IT-MYLANLABS-2013S1019291

PATIENT
  Age: 83 Year
  Sex: Male

DRUGS (3)
  1. SIMVASTATIN [Suspect]
     Indication: PRODUCT USED FOR UNKNOWN INDICATION
     Route: 048
     Dates: start: 20130615, end: 20130615
  2. PLAVIX [Suspect]
     Indication: ANGIOPLASTY
     Route: 048
     Dates: start: 20130615, end: 20130620
  3. CARDIOASPIRIN [Suspect]
     Indication: ANGIOPLASTY
     Route: 048
     Dates: start: 20130615, end: 20130620

REACTIONS (3)
  - Syncope [Unknown]
  - Vertigo [Unknown]
  - Head injury [Unknown]
